FAERS Safety Report 11833214 (Version 1)
Quarter: 2015Q4

REPORT INFORMATION
  Report Type: Spontaneous
  Country: US (occurrence: US)
  Receive Date: 20151214
  Receipt Date: 20151214
  Transmission Date: 20160305
  Serious: No
  Sender: FDA-Public Use
  Company Number: US-PERRIGO-14US011807

PATIENT
  Age: 23 Year
  Sex: Female
  Weight: 49.89 kg

DRUGS (2)
  1. MINOXIDIL. [Suspect]
     Active Substance: MINOXIDIL
     Dosage: 1 ML, SINGLE
     Route: 061
     Dates: start: 20141201, end: 20141201
  2. MINOXIDIL. [Suspect]
     Active Substance: MINOXIDIL
     Indication: ALOPECIA
     Dosage: 1 ML, WEEKLY
     Route: 061
     Dates: end: 20141129

REACTIONS (2)
  - Inappropriate schedule of drug administration [Recovered/Resolved]
  - Application site pain [Recovering/Resolving]

NARRATIVE: CASE EVENT DATE: 20141201
